FAERS Safety Report 11614913 (Version 2)
Quarter: 2015Q4

REPORT INFORMATION
  Report Type: Other
  Country: FR (occurrence: FR)
  Receive Date: 20151009
  Receipt Date: 20151221
  Transmission Date: 20160304
  Serious: Yes (Other)
  Sender: FDA-Public Use
  Company Number: FR-SHIRE-FR201512308

PATIENT
  Sex: Male
  Weight: 90 kg

DRUGS (2)
  1. XAGRID [Suspect]
     Active Substance: ANAGRELIDE HYDROCHLORIDE
     Indication: ESSENTIAL THROMBOCYTHAEMIA
     Dosage: 0.5 MG, 2X/DAY:BID (2 CAPSULES IN THE MORNING AND 1 CAPSULE IN THE EVENING)
     Route: 048
     Dates: start: 20080101
  2. PARACETAMOL [Concomitant]
     Active Substance: ACETAMINOPHEN
     Indication: HEADACHE
     Dosage: UNK, AS REQ^D
     Route: 065
     Dates: start: 20080101

REACTIONS (4)
  - Helicobacter infection [Unknown]
  - Abdominal pain upper [Unknown]
  - Gastric ulcer [Unknown]
  - Dyspepsia [Recovering/Resolving]
